FAERS Safety Report 8398632-1 (Version None)
Quarter: 2012Q2

REPORT INFORMATION
  Report Type: 
  Country: None (occurrence: None)
  Receive Date: 20120531
  Receipt Date: 20120524
  Transmission Date: 20120825
  Serious: Yes (Hospitalization, Other)
  Sender: FDA-Public Use
  Company Number: FR-ROCHE-1069024

PATIENT
  Sex: Female
  Weight: 82 kg

DRUGS (4)
  1. ASCORBIC ACID [Suspect]
     Indication: PRODUCT USED FOR UNKNOWN INDICATION
  2. FUCIDINE CAP [Concomitant]
     Dates: start: 20120327, end: 20120405
  3. ACETAMINOPHEN [Suspect]
     Indication: PRODUCT USED FOR UNKNOWN INDICATION
  4. VISMODEGIB [Suspect]
     Indication: BASAL CELL CARCINOMA
     Dosage: LAST DOSE PRIOR TO SAE: 06 MAY 2012
     Route: 048
     Dates: start: 20120301

REACTIONS (1)
  - CYTOLYTIC HEPATITIS [None]
